FAERS Safety Report 23131190 (Version 2)
Quarter: 2024Q3

REPORT INFORMATION
  Report Type: Spontaneous
  Country: US (occurrence: US)
  Receive Date: 20231031
  Receipt Date: 20240926
  Transmission Date: 20241016
  Serious: Yes (Other)
  Sender: SANOFI AVENTIS
  Company Number: US-SA-SAC20231030001973

PATIENT
  Age: 62 Year
  Sex: Female
  Weight: 70 kg

DRUGS (2)
  1. DUPIXENT [Suspect]
     Active Substance: DUPILUMAB
     Indication: Dermatitis atopic
     Dosage: 300 MG, QOW
     Route: 058
     Dates: start: 20210804
  2. DUPIXENT [Suspect]
     Active Substance: DUPILUMAB
     Indication: Osteoporosis

REACTIONS (6)
  - Spinal operation [Unknown]
  - Stomatitis [Unknown]
  - Aphthous ulcer [Unknown]
  - Vision blurred [Unknown]
  - Dry eye [Unknown]
  - Product use in unapproved indication [Unknown]
